FAERS Safety Report 7092520-9 (Version None)
Quarter: 2010Q4

REPORT INFORMATION
  Report Type: 
  Country: None (occurrence: None)
  Receive Date: 20101110
  Receipt Date: 20100329
  Transmission Date: 20110411
  Serious: Yes (Hospitalization)
  Sender: FDA-Public Use
  Company Number: US-BAYER-201010669NA

PATIENT
  Age: 24 Year
  Sex: Female
  Weight: 100 kg

DRUGS (10)
  1. YASMIN [Suspect]
     Indication: ORAL CONTRACEPTION
     Route: 048
     Dates: start: 20010601, end: 20071001
  2. AMOXICILLIN AND CLAVULANATE POTASSIUM [Concomitant]
  3. PREDNISONE [Concomitant]
  4. NYSTATIN / TRIAMCINOLONE [Concomitant]
  5. ZITHROMAX [Concomitant]
  6. ORLISTAT [Concomitant]
  7. ALEVE (CAPLET) [Concomitant]
  8. IBUPROFEN [Concomitant]
  9. TYLENOL [Concomitant]
  10. ORTHO TRI-CYCLEN LO [Concomitant]
     Indication: CONTRACEPTION
     Route: 048
     Dates: start: 20071001, end: 20071128

REACTIONS (5)
  - BACK PAIN [None]
  - DEEP VEIN THROMBOSIS [None]
  - HEPATIC STEATOSIS [None]
  - LIVER FUNCTION TEST ABNORMAL [None]
  - OEDEMA PERIPHERAL [None]
